FAERS Safety Report 18179147 (Version 2)
Quarter: 2020Q3

REPORT INFORMATION
  Report Type: Spontaneous
  Country: CN (occurrence: CN)
  Receive Date: 20200821
  Receipt Date: 20200902
  Transmission Date: 20201103
  Serious: Yes (Other)
  Sender: FDA-Public Use
  Company Number: CN-LUPIN PHARMACEUTICALS INC.-2020-04888

PATIENT
  Age: 51 Year
  Sex: Male
  Weight: 60 kg

DRUGS (7)
  1. CEFTRIAXONE. [Suspect]
     Active Substance: CEFTRIAXONE
     Indication: PEMPHIGOID
     Dosage: 2000 MILLIGRAM, QD
     Route: 065
  2. HUMAN ALBUMIN [Suspect]
     Active Substance: ALBUMIN HUMAN
     Indication: PEMPHIGOID
     Dosage: 10 GRAM, QD
     Route: 065
  3. METHYLPREDNISOLONE. [Suspect]
     Active Substance: METHYLPREDNISOLONE
     Dosage: 52 MILLIGRAM, QD
     Route: 065
  4. PREDNISONE. [Suspect]
     Active Substance: PREDNISONE
     Indication: PEMPHIGOID
     Dosage: 1.25 MILLIGRAM/KILOGRAM, QD
     Route: 065
  5. PREDNISONE. [Suspect]
     Active Substance: PREDNISONE
     Dosage: 1 MILLIGRAM/KILOGRAM, QD
     Route: 005
  6. METHYLPREDNISOLONE. [Suspect]
     Active Substance: METHYLPREDNISOLONE
     Dosage: 60 MILLIGRAM, QD, DOSE INCREASED FROM DAY 6
     Route: 065
  7. METHYLPREDNISOLONE. [Suspect]
     Active Substance: METHYLPREDNISOLONE
     Indication: PEMPHIGOID
     Dosage: 40 MILLIGRAM, QD, FOR 5 DAYS
     Route: 065

REACTIONS (1)
  - Drug resistance [Unknown]
